FAERS Safety Report 13269747 (Version 3)
Quarter: 2018Q4

REPORT INFORMATION
  Report Type: Report from Study
  Country: DE (occurrence: DE)
  Receive Date: 20170224
  Receipt Date: 20181019
  Transmission Date: 20190204
  Serious: Yes (Other)
  Sender: FDA-Public Use
  Company Number: DE-INCYTE CORPORATION-2015IN003252

PATIENT

DRUGS (19)
  1. INCB018424 [Suspect]
     Active Substance: RUXOLITINIB
     Dosage: 30 MG QD (2 DF OF 15 MG)
     Route: 048
     Dates: start: 20150506, end: 20151022
  2. IBUFLAM                            /00109201/ [Concomitant]
     Active Substance: IBUPROFEN
     Indication: LIGAMENT INJURY
     Dosage: 1 DF, QD (600)
     Route: 065
     Dates: start: 20150904
  3. INCB018424 [Suspect]
     Active Substance: RUXOLITINIB
     Dosage: 20 MG QD
     Route: 048
     Dates: start: 20151022
  4. RAMIPRIL. [Concomitant]
     Active Substance: RAMIPRIL
     Indication: HYPERTENSION
     Dosage: 1 DF, QD (OF 10)
     Route: 065
     Dates: start: 20150120
  5. JANUVIA [Concomitant]
     Active Substance: SITAGLIPTIN PHOSPHATE
     Indication: DIABETES MELLITUS
     Dosage: 1 DF, QD (OF 50)
     Route: 065
     Dates: start: 20150112
  6. TARGIN [Concomitant]
     Active Substance: NALOXONE HYDROCHLORIDE\OXYCODONE HYDROCHLORIDE
     Indication: POLYNEUROPATHY
     Dosage: 2 DF, (OF 10/5, 1-0-1)
     Route: 065
     Dates: start: 20150101
  7. XULTOPHY 100/3.6 [Concomitant]
     Active Substance: INSULIN DEGLUDEC\LIRAGLUTIDE
     Indication: DIABETES MELLITUS
     Dosage: ACCORDING TO BLOOD GLUCOSE VALUES
     Route: 065
     Dates: start: 20170502
  8. TORASEMIDE [Concomitant]
     Active Substance: TORSEMIDE
     Indication: HYPERTENSION
     Dosage: 2 DF, QD (OF 5)
     Route: 065
     Dates: start: 20150112
  9. SIMVASTATIN. [Concomitant]
     Active Substance: SIMVASTATIN
     Indication: HYPERCHOLESTEROLAEMIA
     Dosage: 1 DF, QD (OF 20)
     Route: 065
     Dates: start: 20150112
  10. TORASEMIDE [Concomitant]
     Active Substance: TORSEMIDE
     Indication: POLYURIA
  11. RASILEZ [Concomitant]
     Active Substance: ALISKIREN
     Indication: HYPERTENSION
     Dosage: 2 DF, QD (OF 150)
     Route: 065
     Dates: start: 20150112
  12. CARMEN                             /00740901/ [Concomitant]
     Active Substance: CARBOPLATIN
     Indication: HYPERTENSION
     Dosage: 1 DF, QD (OF 10)
     Route: 065
     Dates: start: 20150112
  13. XARELTO [Concomitant]
     Active Substance: RIVAROXABAN
     Indication: THROMBOSIS PROPHYLAXIS
     Dosage: 1 DF, QD (OF 20)
     Route: 065
     Dates: start: 20120905, end: 20150625
  14. XARELTO [Concomitant]
     Active Substance: RIVAROXABAN
     Dosage: 1 DF, QD (OF 15 MG)
     Route: 065
     Dates: start: 20150626
  15. HYDROCHLOROTHIAZIDE. [Concomitant]
     Active Substance: HYDROCHLOROTHIAZIDE
     Indication: HYPERTENSION
     Dosage: 1 DF, QD (OF 25)
     Route: 065
     Dates: start: 20150112
  16. MOXONIDINE [Concomitant]
     Active Substance: MOXONIDINE
     Indication: HYPERTENSION
     Dosage: 1.5 DF, (OF 0.4, 1-0-0.5)
     Route: 065
     Dates: start: 20150112
  17. NOVALGIN (METAMIZOLE SODIUM) [Concomitant]
     Active Substance: METAMIZOLE SODIUM
     Indication: POLYNEUROPATHY
     Dosage: 4 DF, (OF 500, 1-1-1-1)
     Route: 065
     Dates: start: 20150101
  18. METOHEXAL                          /00376902/ [Concomitant]
     Active Substance: METOPROLOL SUCCINATE
     Indication: HYPERTENSION
     Dosage: 1 DF, BID (OF 95)
     Route: 065
     Dates: start: 20120905
  19. INCB018424 [Suspect]
     Active Substance: RUXOLITINIB
     Indication: MYELOFIBROSIS
     Dosage: 20 MG QD (4 DF OF 5 MG)
     Route: 048
     Dates: start: 20150319, end: 20150505

REACTIONS (2)
  - Iron overload [Not Recovered/Not Resolved]
  - Haemoglobin decreased [Unknown]

NARRATIVE: CASE EVENT DATE: 20150625
